FAERS Safety Report 5518766-6 (Version None)
Quarter: 2007Q4

REPORT INFORMATION
  Report Type: 
  Country: None (occurrence: None)
  Receive Date: 20071113
  Receipt Date: 20071031
  Transmission Date: 20080405
  Serious: Yes (Death, Other)
  Sender: FDA-Public Use
  Company Number: S06-UKI-04686-02

PATIENT
  Sex: Male
  Weight: 4.0824 kg

DRUGS (1)
  1. PROPESS ^FERRING^ (DINOPROSTONE) [Suspect]
     Indication: LABOUR INDUCTION
     Dosage: 10 MG ONCE;TRANSPLACENTAL
     Route: 064
     Dates: start: 20061029, end: 20071029

REACTIONS (6)
  - CAESAREAN SECTION [None]
  - DEATH NEONATAL [None]
  - DRUG EXPOSURE DURING PREGNANCY [None]
  - FOETAL HEART RATE DECREASED [None]
  - PREMATURE SEPARATION OF PLACENTA [None]
  - TACHYCARDIA FOETAL [None]
